FAERS Safety Report 20233195 (Version 1)
Quarter: 2021Q4

REPORT INFORMATION
  Report Type: Spontaneous
  Country: NL (occurrence: NL)
  Receive Date: 20211227
  Receipt Date: 20211227
  Transmission Date: 20220303
  Serious: Yes (Hospitalization)
  Sender: FDA-Public Use
  Company Number: None

PATIENT
  Sex: Female
  Weight: 40.5 kg

DRUGS (17)
  1. LINEZOLID [Suspect]
     Active Substance: LINEZOLID
     Indication: Liver abscess
     Dosage: 1200 MILLIGRAM DAILY; LINEZOLID TABLET FO
     Dates: start: 20211118, end: 20211122
  2. FERROFUMARAT [Concomitant]
     Dosage: 200 MG (MILLIGRAM) , THERAPY START DATE AND END DATE : ASKU
  3. ROSUVASTATIN [Concomitant]
     Active Substance: ROSUVASTATIN
     Dosage: 10 MG (MILLIGRAM) , THERAPY START DATE AND END DATE : ASKU
  4. FLUCONAZOLE [Concomitant]
     Active Substance: FLUCONAZOLE
     Dosage: 40 MG/ML (MILLIGRAM PER MILLILITER) , THERAPY START DATE AND END DATE : ASKU
  5. ASCORBIC ACID [Concomitant]
     Active Substance: ASCORBIC ACID
     Dosage: 500 MG (MILLIGRAM) , THERAPY START DATE AND END DATE : ASKU
  6. VITAMINE B COMPLEX FORTE [Concomitant]
     Dosage: THERAPY START DATE AND END DATE : ASKU
  7. ZOPICLONE [Concomitant]
     Active Substance: ZOPICLONE
     Dosage: 7.5 MG (MILLIGRAM) , THERAPY START DATE AND END DATE : ASKU
  8. PARACETAMOL/ BPH PARACETAMOL [Concomitant]
     Dosage: 500 MG (MILLIGRAM) , THERAPY START DATE AND END DATE : ASKU
  9. INSULINE ASPART [Concomitant]
     Dosage: 100 UNITS/ML (UNITS PER MILLILITER) ,THERAPY START DATE AND END DATE : ASKU
  10. POTASSIUM CHLORIDE [Concomitant]
     Active Substance: POTASSIUM CHLORIDE
     Dosage: 75 MG/ML (MILLIGRAM PER MILLILITER) , THERAPY START DATE AND END DATE : ASKU , KALIUMCHLORIDE INFVLS
  11. CIPROFLOXACIN [Concomitant]
     Active Substance: CIPROFLOXACIN
     Dosage: 500 MG (MILLIGRAM) , THERAPY START DATE AND END DATE : ASKU
  12. BUDESONIDE\FORMOTEROL [Concomitant]
     Active Substance: BUDESONIDE\FORMOTEROL
     Dosage: 200/6 UG/DOSE (MICROGRAMS PER DOSE), THERAPY START DATE AND END DATE : ASKU , STRENGTH : 200/6UG/DO
  13. AMYLASE W/LIPASE/PROTEASE(PANCREAHL/PANZYT 25.000 / PANZYTRAT 25000) [Concomitant]
     Dosage: 22500/25000/1250 FE , AMYLA/LIPA/PROTEA CAP MSR (PANCREAHL/PANZYT 25.000 / PANZYTRAT 25000 CAPSULE M
  14. INSULINE GLARGINE / LANTUS [Concomitant]
     Dosage: 100 UNITS/ML (UNITS PER MILLILITER) ,THERAPY START DATE AND END DATE : ASKU , STRENGTH : 100E/ML CAR
  15. PANTOPRAZOLE SODIUM [Concomitant]
     Active Substance: PANTOPRAZOLE SODIUM
     Dosage: 40 MG (MILLIGRAM) , THERAPY START DATE AND END DATE : ASKU , PANTOPRAZOL TABLET MSR
  16. NADROPARIN [Concomitant]
     Active Substance: NADROPARIN
     Dosage: 9500 IU/ML (UNITS PER MILLILITER) , THERAPY START DATE AND END DATE : ASKU
  17. AMITRIPTYLINE [Concomitant]
     Active Substance: AMITRIPTYLINE
     Dosage: 10 MG (MILLIGRAM) , THERAPY START DATE AND END DATE : ASKU

REACTIONS (3)
  - Intestinal obstruction [Not Recovered/Not Resolved]
  - Nausea [Unknown]
  - Vomiting [Unknown]
